FAERS Safety Report 15363083 (Version 1)
Quarter: 2018Q4

REPORT INFORMATION
  Report Type: Spontaneous
  Country: AT (occurrence: AT)
  Receive Date: 20180907
  Receipt Date: 20180907
  Transmission Date: 20190204
  Serious: Yes (Hospitalization)
  Sender: FDA-Public Use
  Company Number: AT-009507513-1809AUT000389

PATIENT
  Sex: Female

DRUGS (2)
  1. CELESTAN BIPHASE [Suspect]
     Active Substance: BETAMETHASONE
     Indication: MATERNAL THERAPY TO ENHANCE FOETAL LUNG MATURITY
     Dosage: UNK
     Route: 042
     Dates: start: 201808, end: 201808
  2. SOLU-CELESTAN [Suspect]
     Active Substance: BETAMETHASONE
     Indication: MATERNAL THERAPY TO ENHANCE FOETAL LUNG MATURITY

REACTIONS (3)
  - Exposure during pregnancy [Unknown]
  - Wrong product administered [Unknown]
  - Product name confusion [Unknown]

NARRATIVE: CASE EVENT DATE: 201808
